FAERS Safety Report 9008999 (Version 1)
Quarter: 2013Q1

REPORT INFORMATION
  Report Type: Report from Study
  Country: DE (occurrence: DE)
  Receive Date: 20130111
  Receipt Date: 20130111
  Transmission Date: 20140127
  Serious: Yes (Death, Hospitalization)
  Sender: FDA-Public Use
  Company Number: DE-SANOFI-AVENTIS-2013SA001728

PATIENT
  Age: 72 Year
  Sex: Male
  Weight: 55 kg

DRUGS (4)
  1. JEVTANA [Suspect]
     Indication: PROSTATE CANCER METASTATIC
     Route: 051
     Dates: start: 20121002, end: 20121002
  2. JEVTANA [Suspect]
     Indication: PROSTATE CANCER METASTATIC
     Route: 051
     Dates: start: 20121211, end: 20121211
  3. CALCIUM GLUCONATE [Concomitant]
     Route: 042
     Dates: start: 20120221, end: 20121211
  4. IRON PREPARATIONS [Concomitant]
     Route: 042
     Dates: start: 20120221, end: 20121211

REACTIONS (4)
  - Death [Fatal]
  - Nausea [Unknown]
  - Asthenia [Unknown]
  - Thrombocytopenia [Unknown]
